FAERS Safety Report 17610173 (Version 1)
Quarter: 2020Q2

REPORT INFORMATION
  Report Type: Spontaneous
  Country: ES (occurrence: ES)
  Receive Date: 20200401
  Receipt Date: 20200401
  Transmission Date: 20200713
  Serious: Yes (Other)
  Sender: FDA-Public Use
  Company Number: ES-VIIV HEALTHCARE LIMITED-ES2020052974

PATIENT
  Age: 40 Year
  Sex: Male
  Weight: 90 kg

DRUGS (1)
  1. JULUCA [Suspect]
     Active Substance: DOLUTEGRAVIR SODIUM\RILPIVIRINE HYDROCHLORIDE
     Indication: ANTIRETROVIRAL THERAPY
     Dosage: FORCED BY MY HOSPITAL DOCTOR
     Route: 065
     Dates: start: 20200213, end: 20200221

REACTIONS (4)
  - Pyrexia [Recovered/Resolved]
  - Arthritis [Recovered/Resolved]
  - Headache [Recovered/Resolved]
  - Palpitations [Recovered/Resolved]

NARRATIVE: CASE EVENT DATE: 20200218
